FAERS Safety Report 7014738-3 (Version None)
Quarter: 2010Q3

REPORT INFORMATION
  Report Type: 
  Country: None (occurrence: None)
  Receive Date: 20100927
  Receipt Date: 20100923
  Transmission Date: 20110219
  Serious: Yes (Death, Other)
  Sender: FDA-Public Use
  Company Number: PHHY2010GB63062

PATIENT
  Age: 46 Year
  Sex: Male

DRUGS (2)
  1. CYCLOSPORINE [Suspect]
     Indication: LIVER TRANSPLANT
  2. AZATHIOPRINE [Suspect]
     Indication: LIVER TRANSPLANT

REACTIONS (5)
  - CYTOMEGALOVIRUS COLITIS [None]
  - GENERAL PHYSICAL HEALTH DETERIORATION [None]
  - METASTASES TO LIVER [None]
  - METASTASES TO LYMPH NODES [None]
  - RENAL FAILURE [None]
